FAERS Safety Report 4588248-7 (Version None)
Quarter: 2005Q1

REPORT INFORMATION
  Report Type: 
  Country: None (occurrence: None)
  Receive Date: 20050221
  Receipt Date: 20040603
  Transmission Date: 20050727
  Serious: Yes (Hospitalization, Other)
  Sender: FDA-Public Use
  Company Number: SE-ABBOTT-04P-150-0263708-00

PATIENT
  Age: 39 Year
  Sex: Male

DRUGS (3)
  1. KALETRA [Suspect]
     Indication: PNEUMOCYSTIS JIROVECI PNEUMONIA
     Route: 048
     Dates: start: 20031001
  2. DIDANOSINE [Concomitant]
     Indication: PNEUMOCYSTIS JIROVECI PNEUMONIA
     Dates: start: 20031001
  3. LAMIVUDINE AND ZIDOVUDINE [Concomitant]
     Indication: PNEUMOCYSTIS JIROVECI PNEUMONIA
     Route: 048
     Dates: start: 20031001

REACTIONS (2)
  - B-CELL LYMPHOMA [None]
  - VENOUS THROMBOSIS LIMB [None]
